FAERS Safety Report 8975560 (Version 1)
Quarter: 2012Q4

REPORT INFORMATION
  Report Type: 
  Country: US (occurrence: US)
  Receive Date: 20121219
  Receipt Date: 20121219
  Transmission Date: 20130627
  Serious: No
  Sender: FDA-Public Use
  Company Number: US-AMGEN-USASP2012072860

PATIENT
  Age: 72 Year
  Sex: Female

DRUGS (14)
  1. CALCIUM WITH VITAMIN D [Concomitant]
     Dosage: 600 mg, bid
  2. VITAMIN D3 [Concomitant]
     Dosage: 1000 IU, qd
  3. TYLENOL PM [Concomitant]
     Dosage: UNK UNK, prn
  4. COLACE [Concomitant]
     Dosage: 100 mg, qd
  5. FISH OIL [Concomitant]
     Dosage: 1200 mg, qd
  6. LEVOTHYROXINE [Concomitant]
     Dosage: 75 mug, qd
  7. CYTOMEL [Concomitant]
     Dosage: 5 mg, qd
  8. HYZAAR [Concomitant]
     Dosage: UNK UNK, qd
  9. METOPROLOL [Concomitant]
     Dosage: 100 mg, qd
  10. MULTIVITAMIN [Concomitant]
     Dosage: UNK UNK, qd
  11. SIMVASTATIN [Concomitant]
     Dosage: 20 mg, qd
  12. VITAMIN B12 [Concomitant]
     Dosage: 500 mug, qd
  13. XGEVA [Suspect]
     Indication: THYROID CANCER METASTATIC
     Dosage: 120 mg, q4wk
     Dates: start: 20120905
  14. ASPIRIN [Concomitant]
     Dosage: 81 mg, qd

REACTIONS (4)
  - Pruritus [Recovered/Resolved]
  - Urticaria [Recovered/Resolved]
  - Macule [Recovered/Resolved]
  - Skin reaction [Recovered/Resolved]
